FAERS Safety Report 9476722 (Version 2)
Quarter: 2013Q3

REPORT INFORMATION
  Report Type: Spontaneous
  Country: US (occurrence: US)
  Receive Date: 20130826
  Receipt Date: 20130826
  Transmission Date: 20140515
  Serious: No
  Sender: FDA-Public Use
  Company Number: US-BRISTOL-MYERS SQUIBB COMPANY-17124835

PATIENT
  Age: 74 Year
  Sex: Female

DRUGS (3)
  1. KENALOG-40 INJ [Suspect]
     Indication: TEMPOROMANDIBULAR JOINT SYNDROME
     Route: 030
  2. KENALOG-40 INJ [Suspect]
     Indication: TRISMUS
     Route: 030
  3. XYLOCAINE [Concomitant]

REACTIONS (4)
  - Rash [Recovered/Resolved]
  - Headache [Recovered/Resolved]
  - Dizziness [Recovered/Resolved]
  - Lip swelling [Recovered/Resolved]
